FAERS Safety Report 7498143-1 (Version None)
Quarter: 2011Q2

REPORT INFORMATION
  Report Type: 
  Country: None (occurrence: None)
  Receive Date: 20110524
  Receipt Date: 20110513
  Transmission Date: 20111010
  Serious: No
  Sender: FDA-Public Use
  Company Number: US-BIOGENIDEC-2011BI018469

PATIENT
  Age: 50 Year
  Sex: Female

DRUGS (1)
  1. TYSABRI [Suspect]
     Indication: MULTIPLE SCLEROSIS
     Route: 042
     Dates: start: 20110112

REACTIONS (8)
  - VISION BLURRED [None]
  - NASOPHARYNGITIS [None]
  - DRY SKIN [None]
  - ACNE [None]
  - ERYTHEMA [None]
  - WEIGHT INCREASED [None]
  - GAIT DISTURBANCE [None]
  - BALANCE DISORDER [None]
